FAERS Safety Report 18263940 (Version 1)
Quarter: 2020Q3

REPORT INFORMATION
  Report Type: Spontaneous
  Country: SG (occurrence: SG)
  Receive Date: 20200914
  Receipt Date: 20200914
  Transmission Date: 20201103
  Serious: Yes (Life-Threatening, Hospitalization)
  Sender: FDA-Public Use
  Company Number: SG-AKRON, INC.-2090674

PATIENT
  Sex: Male

DRUGS (2)
  1. CIPROFLOXACIN OPHTHALMIC SOLUTION [Suspect]
     Active Substance: CIPROFLOXACIN HYDROCHLORIDE
     Route: 030
  2. GENTAMICIN SULFATE. [Suspect]
     Active Substance: GENTAMICIN SULFATE
     Route: 030

REACTIONS (1)
  - Sepsis [Recovered/Resolved]
